FAERS Safety Report 9567245 (Version 1)
Quarter: 2013Q3

REPORT INFORMATION
  Report Type: Spontaneous
  Country: US (occurrence: US)
  Receive Date: 20130930
  Receipt Date: 20130930
  Transmission Date: 20140515
  Serious: No
  Sender: FDA-Public Use
  Company Number: US-AMGEN-USASP2012062303

PATIENT
  Age: 55 Year
  Sex: Female
  Weight: 45.35 kg

DRUGS (7)
  1. ENBREL [Suspect]
     Indication: RHEUMATOID ARTHRITIS
     Dosage: 50 MG, QWK
     Route: 058
  2. METHOTREXATE [Concomitant]
     Dosage: 2.5 MG, UNK
     Route: 048
  3. PROTONIX [Concomitant]
     Dosage: 20 MG, UNK
     Route: 048
  4. AMITRIPTYLIN [Concomitant]
     Dosage: 100 MG, UNK
     Route: 048
  5. CARAFATE [Concomitant]
     Dosage: 1 G, UNK
     Route: 048
  6. NEURONTIN [Concomitant]
     Dosage: 600 MG, UNK
     Route: 048
  7. FOLIC ACID [Concomitant]
     Route: 048

REACTIONS (2)
  - Fatigue [Unknown]
  - Weight decreased [Unknown]
